FAERS Safety Report 14206263 (Version 2)
Quarter: 2017Q4

REPORT INFORMATION
  Report Type: Report from Study
  Country: JM (occurrence: JM)
  Receive Date: 20171120
  Receipt Date: 20171122
  Transmission Date: 20180321
  Serious: Yes (Death, Other)
  Sender: FDA-Public Use
  Company Number: PHHY2017JM170945

PATIENT
  Age: 59 Year
  Sex: Male
  Weight: 78 kg

DRUGS (5)
  1. HYDROXYCARBAMIDE [Suspect]
     Active Substance: HYDROXYUREA
     Indication: PRODUCT USED FOR UNKNOWN INDICATION
     Dosage: UNK
     Route: 065
  2. ALLOPURINOL. [Concomitant]
     Active Substance: ALLOPURINOL
     Indication: PRODUCT USED FOR UNKNOWN INDICATION
     Dosage: 100 MG, UNK
     Route: 065
  3. GLIVEC [Suspect]
     Active Substance: IMATINIB MESYLATE
     Indication: CHRONIC MYELOID LEUKAEMIA
     Dosage: 400 MG, UNK
     Route: 065
     Dates: start: 2008
  4. GLIVEC [Suspect]
     Active Substance: IMATINIB MESYLATE
     Dosage: 400 MG, BID
     Route: 065
     Dates: start: 2011
  5. HYDROXYCARBAMIDE [Suspect]
     Active Substance: HYDROXYUREA
     Dosage: 1 G, TID
     Route: 065

REACTIONS (16)
  - Fatigue [Unknown]
  - Anaemia [Unknown]
  - Mucosal discolouration [Unknown]
  - Seizure [Unknown]
  - Tongue injury [Unknown]
  - Leukaemia [Fatal]
  - Pneumonia aspiration [Unknown]
  - Leukocytosis [Unknown]
  - Splenomegaly [Unknown]
  - Haemorrhage intracranial [Fatal]
  - Accident [Unknown]
  - Chronic myeloid leukaemia [Not Recovered/Not Resolved]
  - Cerebrovascular accident [Unknown]
  - Asthenia [Unknown]
  - Somnolence [Unknown]
  - Drug resistance [Unknown]

NARRATIVE: CASE EVENT DATE: 20171109
